FAERS Safety Report 14015287 (Version 2)
Quarter: 2018Q1

REPORT INFORMATION
  Report Type: Spontaneous
  Country: IT (occurrence: IT)
  Receive Date: 20170927
  Receipt Date: 20180123
  Transmission Date: 20180508
  Serious: Yes (Other)
  Sender: FDA-Public Use
  Company Number: IT-PFIZER INC-2017412181

PATIENT
  Age: 40 Year
  Sex: Male

DRUGS (2)
  1. LAROXYL [Suspect]
     Active Substance: AMITRIPTYLINE HYDROCHLORIDE
     Dosage: 10 ML, TOTAL
     Route: 048
     Dates: start: 20170918, end: 20170918
  2. ALPRAZOLAM. [Suspect]
     Active Substance: ALPRAZOLAM
     Dosage: 15 ML, TOTAL
     Route: 048
     Dates: start: 20170918, end: 20170918

REACTIONS (4)
  - Drug abuse [Recovering/Resolving]
  - Overdose [Recovering/Resolving]
  - Sopor [Recovering/Resolving]
  - Intentional self-injury [Recovering/Resolving]

NARRATIVE: CASE EVENT DATE: 20170918
